FAERS Safety Report 8074650-8 (Version None)
Quarter: 2012Q1

REPORT INFORMATION
  Report Type: 
  Country: None (occurrence: None)
  Receive Date: 20120120
  Receipt Date: 20120103
  Transmission Date: 20120608
  Serious: Yes (Death)
  Sender: FDA-Public Use
  Company Number: B0773519A

PATIENT
  Age: 48 Year
  Sex: Male

DRUGS (6)
  1. GABAPENTIN [Suspect]
     Indication: PRODUCT USED FOR UNKNOWN INDICATION
     Dosage: UNK / UNK / ORAL
     Route: 048
  2. TRICYCLIC ANTIDEPRESSANT (FORMULATION UNKNOWN) (GENERIC) (TRICYCLIC AN [Suspect]
     Indication: PRODUCT USED FOR UNKNOWN INDICATION
     Dosage: UNK / UNK / ORAL
     Route: 048
  3. HYDROCODONE BITARTRATE + ACETAMINOPHEN [Suspect]
     Indication: PRODUCT USED FOR UNKNOWN INDICATION
     Dosage: UNK / UNK / UNKNOWN
  4. METHYLPREDNISOLONE [Suspect]
     Indication: PRODUCT USED FOR UNKNOWN INDICATION
     Dosage: UNK / UNK / ORAL
     Route: 048
  5. BUPROPION HYDROCHLORIDE [Suspect]
     Indication: PRODUCT USED FOR UNKNOWN INDICATION
     Dosage: UNK / UNK / ORAL
  6. TIOTROPIUM (FORMULATION UNKNOWN) (GENERIC) (TIOTROPIUM) [Suspect]
     Indication: PRODUCT USED FOR UNKNOWN INDICATION
     Dosage: UNK / UNK / ORAL
     Route: 048

REACTIONS (1)
  - INTENTIONAL DRUG MISUSE [None]
